FAERS Safety Report 5195098-X (Version None)
Quarter: 2006Q4

REPORT INFORMATION
  Report Type: 
  Country: None (occurrence: None)
  Receive Date: 20061229
  Receipt Date: 20061019
  Transmission Date: 20070319
  Serious: Yes (Other)
  Sender: FDA-Public Use
  Company Number: US-SHR-US-2006-031777

PATIENT
  Age: 42 Year
  Sex: Female

DRUGS (4)
  1. BETASERON [Suspect]
     Dosage: 8 MIU, EVERY 2D
     Route: 058
     Dates: start: 20060126
  2. PERCOCET [Concomitant]
  3. REGLAN [Suspect]
  4. PREVACID [Concomitant]

REACTIONS (12)
  - BACK PAIN [None]
  - DROOLING [None]
  - DRUG HYPERSENSITIVITY [None]
  - NECK PAIN [None]
  - PARALYSIS [None]
  - POST PROCEDURAL COMPLICATION [None]
  - POST PROCEDURAL HAEMORRHAGE [None]
  - SPEECH DISORDER [None]
  - SWELLING [None]
  - SWELLING FACE [None]
  - SWOLLEN TONGUE [None]
  - VOMITING [None]
